FAERS Safety Report 4888909-6 (Version None)
Quarter: 2005Q4

REPORT INFORMATION
  Report Type: 
  Country: None (occurrence: None)
  Receive Date: 20051215
  Receipt Date: 20050627
  Transmission Date: 20060501
  Serious: Yes (Life-Threatening, Other)
  Sender: FDA-Public Use
  Company Number: 2005093784

PATIENT
  Age: 54 Year
  Sex: Female
  Weight: 57.6068 kg

DRUGS (2)
  1. BEXTRA [Suspect]
     Indication: BACK INJURY
     Dosage: 20 MG (20 MG,1 IN 1 D),ORAL
     Route: 048
     Dates: start: 20050223
  2. FLEXERIL (CYCLOENZAPRINE HYDROCHLORIDE) [Suspect]
     Indication: BACK INJURY

REACTIONS (2)
  - DYSPNOEA [None]
  - PALPITATIONS [None]
